FAERS Safety Report 7040390-7 (Version None)
Quarter: 2010Q4

REPORT INFORMATION
  Report Type: 
  Country: None (occurrence: None)
  Receive Date: 20101012
  Receipt Date: 20100930
  Transmission Date: 20110411
  Serious: Yes (Hospitalization)
  Sender: FDA-Public Use
  Company Number: PHHY2010VE65394

PATIENT
  Sex: Female

DRUGS (4)
  1. ACLASTA [Suspect]
     Indication: OSTEOPOROSIS
     Dosage: 5 MG
     Route: 042
     Dates: start: 20100501
  2. ALENDRONATE SODIUM [Concomitant]
  3. CALCIUM [Concomitant]
  4. VITAMIN E [Concomitant]
     Dosage: UNK

REACTIONS (4)
  - HYPERTENSION [None]
  - SURGERY [None]
  - SWELLING [None]
  - UPPER AIRWAY OBSTRUCTION [None]
